FAERS Safety Report 9215876 (Version 1)
Quarter: 2013Q2

REPORT INFORMATION
  Report Type: Spontaneous
  Country: CA (occurrence: None)
  Receive Date: 20130403
  Receipt Date: 20130403
  Transmission Date: 20140414
  Serious: Yes (Disabling)
  Sender: FDA-Public Use
  Company Number: ACO_35095_2013

PATIENT
  Age: 61 Year
  Sex: Male

DRUGS (1)
  1. FAMPYRA [Suspect]
     Indication: GAIT DISTURBANCE
     Route: 048
     Dates: start: 20121017

REACTIONS (5)
  - Abasia [None]
  - Fall [None]
  - Abdominal pain upper [None]
  - Visual acuity reduced [None]
  - Eye pain [None]
